FAERS Safety Report 5641996-X (Version None)
Quarter: 2008Q1

REPORT INFORMATION
  Report Type: 
  Country: None (occurrence: None)
  Receive Date: 20080131
  Receipt Date: 20071213
  Transmission Date: 20080703
  Serious: No
  Sender: FDA-Public Use
  Company Number: 163-21880-07120797

PATIENT
  Age: 54 Year
  Sex: Male

DRUGS (9)
  1. REVLIMID [Suspect]
     Indication: MYELODYSPLASTIC SYNDROME
     Dosage: 10 MG, QHS, ORAL
     Route: 048
     Dates: start: 20070524
  2. DARVOCET [Concomitant]
  3. BENADRYL [Concomitant]
  4. ASACOL [Concomitant]
  5. NEURONTIN [Concomitant]
  6. PRILOSEC [Concomitant]
  7. FOLIC ACID [Concomitant]
  8. MULTIVITAMIN [Concomitant]
  9. LIDEX (FLUOCINONIDE) (CREAM) [Concomitant]

REACTIONS (1)
  - DRY SKIN [None]
